FAERS Safety Report 24810663 (Version 1)
Quarter: 2025Q1

REPORT INFORMATION
  Report Type: Spontaneous
  Country: US (occurrence: US)
  Receive Date: 20250106
  Receipt Date: 20250106
  Transmission Date: 20250409
  Serious: Yes (Life-Threatening, Other)
  Sender: TORRENT PHARMA INC.
  Company Number: US-TORRENT-00013949

PATIENT
  Age: 55 Year
  Sex: Male

DRUGS (2)
  1. PANTOPRAZOLE [Suspect]
     Active Substance: PANTOPRAZOLE
     Indication: Pancreatic pseudoaneurysm
     Route: 065
  2. OCTREOTIDE [Suspect]
     Active Substance: OCTREOTIDE
     Indication: Pancreatic pseudoaneurysm
     Route: 065

REACTIONS (1)
  - Shock haemorrhagic [Unknown]
